FAERS Safety Report 6146050-9 (Version None)
Quarter: 2009Q2

REPORT INFORMATION
  Report Type: 
  Country: None (occurrence: None)
  Receive Date: 20090406
  Receipt Date: 20090406
  Transmission Date: 20091009
  Serious: Yes (Other)
  Sender: FDA-Public Use
  Company Number: None

PATIENT
  Sex: Female
  Weight: 83.9154 kg

DRUGS (2)
  1. CYMBALTA [Suspect]
     Indication: DEPRESSION
     Dosage: 40MG 1/DAY FOR 2 WEEKS PO; 20 MG THEN 1/DAY PO
     Route: 048
  2. CYMBALTA [Suspect]
     Indication: FIBROMYALGIA
     Dosage: 40MG 1/DAY FOR 2 WEEKS PO; 20 MG THEN 1/DAY PO
     Route: 048

REACTIONS (6)
  - ACTIVITIES OF DAILY LIVING IMPAIRED [None]
  - DRUG WITHDRAWAL SYNDROME [None]
  - HEADACHE [None]
  - IMPAIRED WORK ABILITY [None]
  - NAUSEA [None]
  - TINNITUS [None]
